FAERS Safety Report 7397374-9 (Version None)
Quarter: 2011Q2

REPORT INFORMATION
  Report Type: 
  Country: None (occurrence: None)
  Receive Date: 20110406
  Receipt Date: 20110328
  Transmission Date: 20111010
  Serious: Yes (Other)
  Sender: FDA-Public Use
  Company Number: US-ROCHE-429958

PATIENT
  Sex: Male
  Weight: 90.7 kg

DRUGS (3)
  1. ACCUTANE [Suspect]
     Indication: ACNE
     Dosage: UNITS: MG/KG/DAY.
     Route: 048
     Dates: start: 20000915, end: 20010327
  2. MINOCYCLINE [Suspect]
     Indication: ACNE
     Route: 048
  3. ACCUTANE [Suspect]
     Route: 048
     Dates: start: 20010405

REACTIONS (5)
  - INFLAMMATORY BOWEL DISEASE [None]
  - COLITIS ULCERATIVE [None]
  - PSEUDOPOLYP [None]
  - ARTERITIS [None]
  - SACROILIITIS [None]
